FAERS Safety Report 9284021 (Version 2)
Quarter: 2014Q3

REPORT INFORMATION
  Report Type: Spontaneous
  Country: US (occurrence: US)
  Receive Date: 20130510
  Receipt Date: 20140728
  Transmission Date: 20150326
  Serious: Yes (Hospitalization)
  Sender: FDA-Public Use
  Company Number: US-BAYER-2013-058652

PATIENT
  Age: 31 Year
  Sex: Female
  Weight: 77.98 kg

DRUGS (6)
  1. DEMEROL [Concomitant]
     Active Substance: MEPERIDINE HYDROCHLORIDE
     Dosage: 50 MG, UNK
     Route: 030
  2. PHENERGAN [PROMETHAZINE] [Concomitant]
     Dosage: 25 MG, UNK
     Route: 030
  3. HYDROCODONE BIT/APAP [Concomitant]
     Active Substance: ACETAMINOPHEN\HYDROCODONE BITARTRATE
     Dosage: 5-500
  4. YAZ [Suspect]
     Active Substance: DROSPIRENONE\ETHINYL ESTRADIOL
     Dosage: UNK
  5. VICODIN [Concomitant]
     Active Substance: ACETAMINOPHEN\HYDROCODONE BITARTRATE
     Indication: PAIN
  6. MORPHINE SULFATE. [Concomitant]
     Active Substance: MORPHINE SULFATE
     Dosage: 5 MG, UNK
     Route: 030

REACTIONS (8)
  - Anxiety [None]
  - Deep vein thrombosis [None]
  - General physical health deterioration [None]
  - Pain [None]
  - Emotional distress [None]
  - Injury [None]
  - Thrombosis [None]
  - Abdominal pain [None]

NARRATIVE: CASE EVENT DATE: 20070905
